FAERS Safety Report 6472467-9 (Version None)
Quarter: 2009Q4

REPORT INFORMATION
  Report Type: 
  Country: None (occurrence: None)
  Receive Date: 20091203
  Receipt Date: 20091123
  Transmission Date: 20100525
  Serious: No
  Sender: FDA-Public Use
  Company Number: US-B.I. PHARMACEUTICALS,INC./RIDGEFIELD-2009-BP-13597BP

PATIENT
  Age: 83 Year
  Sex: Female

DRUGS (2)
  1. ATROVENT HFA [Suspect]
     Indication: CHRONIC OBSTRUCTIVE PULMONARY DISEASE
     Dosage: 6 PUF
     Route: 055
  2. ALBUTEROL [Concomitant]
     Indication: INHALATION THERAPY

REACTIONS (6)
  - COUGH [None]
  - DRY MOUTH [None]
  - ERYTHEMA [None]
  - EYE DISORDER [None]
  - SKIN IRRITATION [None]
  - SOMNOLENCE [None]
